FAERS Safety Report 6471080-7 (Version None)
Quarter: 2009Q4

REPORT INFORMATION
  Report Type: 
  Country: None (occurrence: None)
  Receive Date: 20091201
  Receipt Date: 20091119
  Transmission Date: 20100525
  Serious: Yes (Hospitalization)
  Sender: FDA-Public Use
  Company Number: 09-098

PATIENT
  Age: 82 Year
  Sex: Male
  Weight: 61.2356 kg

DRUGS (3)
  1. CEPHALEXIN [Suspect]
     Indication: PROPHYLAXIS
     Dosage: 500 MG, ONCE A DAY, ORAL
     Route: 048
     Dates: start: 20091106, end: 20091113
  2. AMIODARONE HCL [Suspect]
     Dosage: ORAL
     Route: 048
  3. SEVERAL UNSPECIFIED MEDICATIONS [Concomitant]

REACTIONS (5)
  - CARDIAC DISORDER [None]
  - DECREASED APPETITE [None]
  - DRUG INTERACTION [None]
  - INSOMNIA [None]
  - MUSCULAR WEAKNESS [None]
